FAERS Safety Report 20499984 (Version 2)
Quarter: 2025Q1

REPORT INFORMATION
  Report Type: Spontaneous
  Country: US (occurrence: US)
  Receive Date: 20220222
  Receipt Date: 20250227
  Transmission Date: 20250408
  Serious: No
  Sender: UCB
  Company Number: US-UCBSA-2021046060

PATIENT
  Age: 38 Year
  Sex: Female

DRUGS (9)
  1. LEVETIRACETAM [Suspect]
     Active Substance: LEVETIRACETAM
     Indication: Chorea
  2. LEVETIRACETAM [Suspect]
     Active Substance: LEVETIRACETAM
     Indication: Off label use
  3. CLOBAZAM [Concomitant]
     Active Substance: CLOBAZAM
     Indication: Chorea
  4. CLONAZEPAM [Concomitant]
     Active Substance: CLONAZEPAM
     Indication: Chorea
  5. CYPROHEPTADINE [Concomitant]
     Active Substance: CYPROHEPTADINE
     Indication: Chorea
  6. DANTROLENE [Concomitant]
     Active Substance: DANTROLENE
     Indication: Chorea
  7. CARBIDOPA\LEVODOPA [Concomitant]
     Active Substance: CARBIDOPA\LEVODOPA
     Indication: Chorea
  8. RISPERIDONE [Concomitant]
     Active Substance: RISPERIDONE
     Indication: Chorea
  9. VALPROATE [Concomitant]
     Active Substance: VALPROIC ACID
     Indication: Chorea

REACTIONS (2)
  - Drug ineffective for unapproved indication [Unknown]
  - Off label use [Unknown]
